FAERS Safety Report 9629764 (Version 2)
Quarter: 2014Q1

REPORT INFORMATION
  Report Type: Spontaneous
  Country: FR (occurrence: FR)
  Receive Date: 20131017
  Receipt Date: 20140305
  Transmission Date: 20141002
  Serious: Yes (Hospitalization)
  Sender: FDA-Public Use
  Company Number: FR-GLAXOSMITHKLINE-B0929366A

PATIENT
  Age: 32 Year
  Sex: Female

DRUGS (9)
  1. ZOPHREN [Suspect]
     Indication: PREMEDICATION
     Dosage: 4MG THREE TIMES PER DAY
     Route: 048
     Dates: start: 20130920, end: 20130920
  2. ENDOXAN [Suspect]
     Indication: SYSTEMIC LUPUS ERYTHEMATOSUS
     Dosage: 1200MG CYCLIC
     Route: 042
     Dates: start: 20130920, end: 20130920
  3. UROMITEXAN [Suspect]
     Indication: PREMEDICATION
     Dosage: 930MG CYCLIC
     Route: 042
     Dates: start: 20130920, end: 20130920
  4. INEXIUM [Concomitant]
     Dosage: 20MG PER DAY
  5. BACTRIM [Concomitant]
     Dosage: 400MG PER DAY
  6. PARACETAMOL [Concomitant]
  7. OROCAL D3 [Concomitant]
  8. COUMADINE [Concomitant]
     Dosage: 4MG PER DAY
  9. TRIATEC [Concomitant]
     Dosage: 1.25MG PER DAY

REACTIONS (6)
  - Hepatocellular injury [Recovering/Resolving]
  - Pyrexia [Recovered/Resolved]
  - Chills [Recovered/Resolved]
  - Inflammation [Recovered/Resolved]
  - Face oedema [Unknown]
  - Urticaria [Recovered/Resolved]
